FAERS Safety Report 5480350-0 (Version None)
Quarter: 2007Q4

REPORT INFORMATION
  Report Type: 
  Country: None (occurrence: None)
  Receive Date: 20071009
  Receipt Date: 20070928
  Transmission Date: 20080405
  Serious: Yes (Other)
  Sender: FDA-Public Use
  Company Number: GB-ROCHE-522400

PATIENT
  Age: 57 Year
  Sex: Female
  Weight: 88.9 kg

DRUGS (1)
  1. ORLISTAT [Suspect]
     Indication: OBESITY
     Route: 048
     Dates: start: 20070704

REACTIONS (1)
  - CEREBROVASCULAR ACCIDENT [None]
